FAERS Safety Report 12934397 (Version 2)
Quarter: 2016Q4

REPORT INFORMATION
  Report Type: Spontaneous
  Country: IT (occurrence: IT)
  Receive Date: 20161111
  Receipt Date: 20161118
  Transmission Date: 20170207
  Serious: Yes (Hospitalization)
  Sender: FDA-Public Use
  Company Number: IT-SA-2016SA202799

PATIENT
  Age: 76 Year
  Sex: Male

DRUGS (1)
  1. ZALTRAP [Suspect]
     Active Substance: ZIV-AFLIBERCEPT
     Indication: COLON CANCER STAGE IV
     Route: 041
     Dates: start: 20160706, end: 20160706

REACTIONS (1)
  - Prinzmetal angina [Recovered/Resolved]

NARRATIVE: CASE EVENT DATE: 20160708
